FAERS Safety Report 5283615-0 (Version None)
Quarter: 2007Q2

REPORT INFORMATION
  Report Type: 
  Country: None (occurrence: None)
  Receive Date: 20070402
  Receipt Date: 20070330
  Transmission Date: 20071010
  Serious: Yes (Death, Other)
  Sender: FDA-Public Use
  Company Number: 2006UW21569

PATIENT
  Sex: Female

DRUGS (5)
  1. SEROQUEL [Suspect]
     Indication: BIPOLAR DISORDER
     Route: 048
  2. SEROQUEL [Suspect]
     Indication: DEPRESSION
     Route: 048
  3. ABILIFY [Concomitant]
  4. RISPERDAL [Concomitant]
  5. ZYPREXA [Concomitant]

REACTIONS (2)
  - DEATH [None]
  - PANCREATITIS [None]
